FAERS Safety Report 23118673 (Version 2)
Quarter: 2023Q4

REPORT INFORMATION
  Report Type: Spontaneous
  Country: US (occurrence: US)
  Receive Date: 20231028
  Receipt Date: 20231221
  Transmission Date: 20240109
  Serious: No
  Sender: FDA-Public Use
  Company Number: US-GSKCCFUS-Case-01835083_AE-102554

PATIENT
  Age: 37 Year
  Sex: Female
  Weight: 153 kg

DRUGS (2)
  1. BENLYSTA [Suspect]
     Active Substance: BELIMUMAB
     Indication: Systemic lupus erythematosus
     Dosage: 1600 MG, BID
     Dates: start: 202304
  2. BENLYSTA [Suspect]
     Active Substance: BELIMUMAB
     Dosage: 10 KG
     Route: 042
     Dates: start: 202310

REACTIONS (1)
  - Nausea [Recovered/Resolved]

NARRATIVE: CASE EVENT DATE: 20231001
